FAERS Safety Report 5050716-1 (Version None)
Quarter: 2006Q3

REPORT INFORMATION
  Report Type: 
  Country: None (occurrence: None)
  Receive Date: 20060713
  Receipt Date: 20060407
  Transmission Date: 20061208
  Serious: Yes (Hospitalization)
  Sender: FDA-Public Use
  Company Number: FR-BRISTOL-MYERS SQUIBB COMPANY-13343181

PATIENT
  Age: 80 Year
  Sex: Male

DRUGS (6)
  1. VASTEN TABS 20 MG [Suspect]
     Indication: HYPERCHOLESTEROLAEMIA
     Route: 048
     Dates: end: 20060218
  2. PANTOPRAZOLE SODIUM [Concomitant]
     Route: 048
  3. BUFLOMEDIL [Concomitant]
     Route: 048
  4. NITRODERM [Concomitant]
     Dosage: DOSAGE FORM = PATCH
  5. PREVISCAN [Concomitant]
     Route: 048
  6. LOPRESSOR [Concomitant]
     Route: 048

REACTIONS (6)
  - ANOREXIA [None]
  - BLOOD CREATINE PHOSPHOKINASE INCREASED [None]
  - CYTOLYTIC HEPATITIS [None]
  - GENERAL PHYSICAL HEALTH DETERIORATION [None]
  - HEPATITIS CHOLESTATIC [None]
  - THROMBOCYTOPENIA [None]
